FAERS Safety Report 12529238 (Version 9)
Quarter: 2017Q3

REPORT INFORMATION
  Report Type: Spontaneous
  Country: BR (occurrence: BR)
  Receive Date: 20160705
  Receipt Date: 20170705
  Transmission Date: 20171127
  Serious: Yes (Hospitalization)
  Sender: FDA-Public Use
  Company Number: BR-TAKEDA-2016MPI005705

PATIENT
  Age: 71 Year
  Sex: Female
  Weight: 60 kg

DRUGS (4)
  1. DARATUMUMAB [Suspect]
     Active Substance: DARATUMUMAB
     Indication: PLASMA CELL MYELOMA
     Dosage: 1040 MG, 1/WEEK
     Route: 042
     Dates: start: 20160530, end: 20160606
  2. MELPHALAN. [Suspect]
     Active Substance: MELPHALAN
     Indication: PLASMA CELL MYELOMA
     Dosage: 14 MG, UNK
     Route: 048
     Dates: start: 20160531
  3. VELCADE [Suspect]
     Active Substance: BORTEZOMIB
     Indication: PLASMA CELL MYELOMA
     Dosage: 2.21 MG, 2/WEEK
     Route: 058
     Dates: start: 20160530, end: 20160606
  4. PREDNISONE. [Suspect]
     Active Substance: PREDNISONE
     Indication: PLASMA CELL MYELOMA
     Dosage: 100 MG, UNK
     Route: 048
     Dates: start: 20160531

REACTIONS (9)
  - Epistaxis [Recovering/Resolving]
  - Neutropenia [Unknown]
  - Lung disorder [Unknown]
  - Haematotoxicity [Recovering/Resolving]
  - Diarrhoea [Unknown]
  - Abdominal distension [Recovering/Resolving]
  - Lower respiratory tract infection bacterial [Recovered/Resolved]
  - Thrombocytopenia [Unknown]
  - Haemoptysis [Recovering/Resolving]

NARRATIVE: CASE EVENT DATE: 20160609
